FAERS Safety Report 9298002 (Version 2)
Quarter: 2013Q2

REPORT INFORMATION
  Report Type: Spontaneous
  Country: US (occurrence: US)
  Receive Date: 20130520
  Receipt Date: 20130528
  Transmission Date: 20140414
  Serious: Yes (Other)
  Sender: FDA-Public Use
  Company Number: PHEH2013US010877

PATIENT
  Age: 61 Year
  Sex: Female

DRUGS (5)
  1. RECLAST [Suspect]
     Indication: OSTEOPOROSIS
     Dosage: 5 MG/100ML
     Route: 042
     Dates: start: 20130424
  2. COUMADIN [Concomitant]
     Dosage: UNK
  3. CELEXA [Concomitant]
     Dosage: UNK
  4. THEO-DUR [Concomitant]
     Dosage: UNK
  5. PROTONIX [Concomitant]
     Dosage: UNK

REACTIONS (6)
  - Rib fracture [Recovering/Resolving]
  - Loss of consciousness [Recovered/Resolved with Sequelae]
  - Local swelling [Unknown]
  - Joint swelling [Unknown]
  - Myalgia [Unknown]
  - Pain in extremity [Unknown]
